FAERS Safety Report 11969626 (Version 2)
Quarter: 2016Q1

REPORT INFORMATION
  Report Type: Spontaneous
  Country: US (occurrence: US)
  Receive Date: 20160128
  Receipt Date: 20160224
  Transmission Date: 20160526
  Serious: Yes (Other)
  Sender: FDA-Public Use
  Company Number: US-009507513-1601USA007442

PATIENT
  Age: 65 Year
  Sex: Female
  Weight: 69.84 kg

DRUGS (9)
  1. HYDREA [Concomitant]
     Active Substance: HYDROXYUREA
     Indication: POLYCYTHAEMIA VERA
     Dosage: UNK
  2. PRINIVIL [Suspect]
     Active Substance: LISINOPRIL
     Dosage: UNK
     Route: 048
     Dates: start: 20151014
  3. JAKAFI [Suspect]
     Active Substance: RUXOLITINIB
     Indication: POLYCYTHAEMIA VERA
     Dosage: 10 MG, BID
     Route: 048
     Dates: start: 20151013
  4. ASPIRIN. [Concomitant]
     Active Substance: ASPIRIN
     Dosage: UNK
  5. GINGER. [Concomitant]
     Active Substance: GINGER
     Dosage: UNK
  6. JAKAFI [Suspect]
     Active Substance: RUXOLITINIB
     Indication: MYELOFIBROSIS
     Dosage: 5 MG, BID
     Route: 048
     Dates: start: 20151012, end: 20151015
  7. PRINIVIL [Suspect]
     Active Substance: LISINOPRIL
     Indication: HYPERTENSION
     Dosage: UNK
     Route: 048
     Dates: end: 20150924
  8. HEMP [Concomitant]
     Active Substance: HEMP
     Dosage: UNK
  9. PRINIVIL [Suspect]
     Active Substance: LISINOPRIL
     Dosage: HALF THE INITIAL DOSE (HALF OF 12.5 TABLET DAILY)
     Route: 048
     Dates: start: 20150924, end: 20151014

REACTIONS (17)
  - Fibromyalgia [Not Recovered/Not Resolved]
  - Anxiety [Unknown]
  - Rheumatoid arthritis [Not Recovered/Not Resolved]
  - Joint injury [Unknown]
  - Dizziness [Unknown]
  - Weight decreased [Unknown]
  - Brain neoplasm [Unknown]
  - Depression [Unknown]
  - Blood pressure decreased [Recovered/Resolved]
  - Fatigue [Unknown]
  - Cerebrovascular accident [Unknown]
  - Dizziness [Not Recovered/Not Resolved]
  - Brain operation [Unknown]
  - Headache [Not Recovered/Not Resolved]
  - Intraventricular haemorrhage [Unknown]
  - Epistaxis [Unknown]
  - Headache [Recovered/Resolved]

NARRATIVE: CASE EVENT DATE: 2009
